FAERS Safety Report 9164735 (Version 1)
Quarter: 2013Q1

REPORT INFORMATION
  Report Type: Spontaneous
  Country: US (occurrence: US)
  Receive Date: 20130315
  Receipt Date: 20130315
  Transmission Date: 20140127
  Serious: No
  Sender: FDA-Public Use
  Company Number: US-PFIZER INC-2013083296

PATIENT
  Age: 79 Year
  Sex: Male
  Weight: 65.76 kg

DRUGS (4)
  1. CELEBREX [Suspect]
     Indication: HIP ARTHROPLASTY
     Dosage: 200 MG
     Route: 048
     Dates: start: 20121101, end: 20130121
  2. LIPITOR [Concomitant]
     Indication: BLOOD CHOLESTEROL ABNORMAL
     Dosage: 40 MG, 1X/DAY
  3. NEXIUM [Concomitant]
     Indication: GASTROOESOPHAGEAL REFLUX DISEASE
     Dosage: 40 MG, 1X/DAY
  4. SYMBICORT [Concomitant]
     Indication: ASTHMA
     Dosage: 160/4.5 MCG (1 DF )

REACTIONS (4)
  - Activities of daily living impaired [Unknown]
  - Pain [Unknown]
  - Post procedural complication [Not Recovered/Not Resolved]
  - Skin disorder [Not Recovered/Not Resolved]
